FAERS Safety Report 7249256-0 (Version None)
Quarter: 2011Q1

REPORT INFORMATION
  Report Type: 
  Country: None (occurrence: None)
  Receive Date: 20110128
  Receipt Date: 20101203
  Transmission Date: 20110831
  Serious: No
  Sender: FDA-Public Use
  Company Number: US-BAYER-2010-006813

PATIENT
  Sex: Female
  Weight: 84 kg

DRUGS (4)
  1. NAPROSYN [Concomitant]
     Dosage: 500 MG, UNK
  2. LASIX [Concomitant]
     Dosage: 20 MG, UNK
  3. YAZ [Suspect]
     Indication: CONTRACEPTION
     Dosage: UNK
     Dates: start: 20081201, end: 20090301
  4. IBUPROFEN [Concomitant]

REACTIONS (2)
  - ABDOMINAL PAIN UPPER [None]
  - MENORRHAGIA [None]
